FAERS Safety Report 10504697 (Version 1)
Quarter: 2014Q4

REPORT INFORMATION
  Report Type: Report from Study
  Country: CA (occurrence: CA)
  Receive Date: 20141008
  Receipt Date: 20141008
  Transmission Date: 20150528
  Serious: Yes (Hospitalization)
  Sender: FDA-Public Use
  Company Number: CA-JNJFOC-20141001493

PATIENT
  Age: 26 Year
  Sex: Female
  Weight: 82.1 kg

DRUGS (5)
  1. REMICADE [Suspect]
     Active Substance: INFLIXIMAB
     Indication: COLITIS ULCERATIVE
     Route: 042
     Dates: start: 20141001, end: 20141001
  2. PREDNISONE. [Concomitant]
     Active Substance: PREDNISONE
     Route: 048
  3. TYLENOL [Concomitant]
     Active Substance: ACETAMINOPHEN
     Indication: PREMEDICATION
     Route: 048
  4. MYFORTIC [Concomitant]
     Active Substance: MYCOPHENOLATE SODIUM
     Route: 065
  5. BENADRYL [Concomitant]
     Active Substance: DIPHENHYDRAMINE HYDROCHLORIDE
     Indication: PREMEDICATION
     Route: 048

REACTIONS (6)
  - Head discomfort [Unknown]
  - Flushing [Unknown]
  - Infusion related reaction [Unknown]
  - Heart rate increased [Unknown]
  - Oxygen saturation decreased [Unknown]
  - Limb discomfort [Unknown]

NARRATIVE: CASE EVENT DATE: 20141001
